FAERS Safety Report 16883349 (Version 4)
Quarter: 2019Q4

REPORT INFORMATION
  Report Type: Spontaneous
  Country: US (occurrence: US)
  Receive Date: 20191004
  Receipt Date: 20191210
  Transmission Date: 20200122
  Serious: Yes (Hospitalization)
  Sender: FDA-Public Use
  Company Number: US-SAREPTA THERAPEUTICS INC.-SRP2019-000552

PATIENT
  Age: 3 Year
  Sex: Male

DRUGS (1)
  1. EXONDYS 51 [Suspect]
     Active Substance: ETEPLIRSEN
     Indication: PRODUCT USED FOR UNKNOWN INDICATION
     Dosage: 30 MG/KG/WEEKLY
     Route: 042

REACTIONS (2)
  - Foot fracture [Unknown]
  - Coagulation factor V level abnormal [Unknown]

NARRATIVE: CASE EVENT DATE: 20190927
